FAERS Safety Report 9778561 (Version 1)
Quarter: 2013Q4

REPORT INFORMATION
  Report Type: Spontaneous
  Country: DE (occurrence: DE)
  Receive Date: 20131223
  Receipt Date: 20131223
  Transmission Date: 20140711
  Serious: Yes (Death, Other)
  Sender: FDA-Public Use
  Company Number: DE-MERCK-1312DEU008048

PATIENT
  Age: 37 Year
  Sex: Male

DRUGS (5)
  1. CANCIDAS [Suspect]
     Indication: FEBRILE NEUTROPENIA
     Dosage: 70 MG, QD
     Route: 042
     Dates: start: 20101002
  2. CANCIDAS [Suspect]
     Indication: FEBRILE NEUTROPENIA
     Dosage: 50 MG, QD
     Route: 042
     Dates: start: 20101003, end: 20101018
  3. ANTINEOPLASTIC (UNSPECIFIED) [Concomitant]
     Indication: ACUTE LYMPHOCYTIC LEUKAEMIA
     Dosage: UNK
  4. ANTINEOPLASTIC (UNSPECIFIED) [Concomitant]
     Indication: ACUTE LYMPHOCYTIC LEUKAEMIA
     Dosage: UNK
     Dates: start: 20101017
  5. ANTINEOPLASTIC (UNSPECIFIED) [Concomitant]
     Dosage: UNK
     Route: 037

REACTIONS (4)
  - Acute lymphocytic leukaemia [Fatal]
  - Sepsis [Fatal]
  - Cerebral fungal infection [Fatal]
  - Multi-organ failure [Fatal]
